FAERS Safety Report 6603646-5 (Version None)
Quarter: 2010Q1

REPORT INFORMATION
  Report Type: 
  Country: None (occurrence: None)
  Receive Date: 20100226
  Receipt Date: 20091229
  Transmission Date: 20100710
  Serious: No
  Sender: FDA-Public Use
  Company Number: A0838069A

PATIENT
  Age: 33 Year
  Sex: Female

DRUGS (4)
  1. VALTREX [Suspect]
     Indication: ANTIVIRAL PROPHYLAXIS
     Dosage: 500MG UNKNOWN
     Route: 048
     Dates: start: 20091201
  2. LEVOTHYROXINE [Concomitant]
  3. TYLENOL-500 [Concomitant]
  4. VITAMIN TAB [Concomitant]

REACTIONS (1)
  - DRUG EXPOSURE DURING PREGNANCY [None]
